FAERS Safety Report 4357260-5 (Version None)
Quarter: 2004Q2

REPORT INFORMATION
  Report Type: 
  Country: None (occurrence: None)
  Receive Date: 20040506
  Receipt Date: 20040427
  Transmission Date: 20050107
  Serious: No
  Sender: FDA-Public Use
  Company Number: TPA2004A00205

PATIENT
  Age: 55 Year
  Sex: Female
  Weight: 104.3273 kg

DRUGS (13)
  1. ACTOS [Suspect]
     Indication: DIABETES MELLITUS NON-INSULIN-DEPENDENT
     Dosage: 45 MG, 1 IN 1 D, PER ORAL
     Route: 048
     Dates: start: 20001027
  2. GLUCOVANCE (GLIBOMET) [Concomitant]
  3. NOVOLIN R [Concomitant]
  4. SYNTHROID [Concomitant]
  5. ZESTORETIC (CARACE PLUS/01613901/) [Concomitant]
  6. LASIX [Concomitant]
  7. K-TAB [Concomitant]
  8. ALLOPURINOL [Concomitant]
  9. CPAP [Concomitant]
  10. NEXIUM [Concomitant]
  11. EASA (ACETYLSALICYLIC ACID) [Concomitant]
  12. NORVASC [Concomitant]
  13. CARDURA [Concomitant]

REACTIONS (7)
  - BLOOD GLUCOSE ABNORMAL [None]
  - BREAST CANCER FEMALE [None]
  - DYSPNOEA EXERTIONAL [None]
  - INJECTION SITE PAIN [None]
  - PAIN [None]
  - RADIATION INJURY [None]
  - SKIN HYPERPIGMENTATION [None]
